FAERS Safety Report 9201200 (Version 1)
Quarter: 2013Q2

REPORT INFORMATION
  Report Type: Report from Study
  Country: AR (occurrence: AR)
  Receive Date: 20130401
  Receipt Date: 20130401
  Transmission Date: 20140414
  Serious: Yes (Hospitalization, Other)
  Sender: FDA-Public Use
  Company Number: PHHO2012AR001473

PATIENT
  Age: 63 Year
  Sex: Male
  Weight: 93 kg

DRUGS (9)
  1. PROGRAF [Suspect]
     Indication: RENAL TRANSPLANT
     Dosage: 4 MG, BID
     Route: 048
     Dates: start: 20110530, end: 20130127
  2. METHYLPREDNISOLONE [Suspect]
     Indication: RENAL TRANSPLANT
     Dosage: 16 MG, 9QD
     Route: 048
     Dates: start: 20110531
  3. METHYLPREDNISOLONE [Suspect]
     Dosage: 8 MG, UNK
     Route: 048
     Dates: start: 20110601, end: 20130127
  4. MYFORTIC [Suspect]
     Dosage: 144 MG, BID
     Route: 048
     Dates: start: 20110530, end: 20130127
  5. ENALAPRIL [Concomitant]
     Indication: HYPERTENSION
     Dosage: 5 UNK, UNK
     Route: 048
     Dates: start: 20120925
  6. OMEPRAZOLE [Concomitant]
     Indication: DYSPEPSIA
     Dosage: 70 MG, BID
     Route: 048
     Dates: start: 20110617
  7. FOLIC ACID [Concomitant]
     Indication: ANAEMIA
     Dosage: 10 MG, BID
     Route: 048
     Dates: start: 20110601
  8. FOLIC ACID [Concomitant]
     Indication: PROPHYLAXIS
  9. BACTRIM [Concomitant]
     Indication: PROPHYLAXIS
     Dosage: 180 MG, BID
     Route: 048
     Dates: start: 20110502

REACTIONS (3)
  - Cellulitis [Recovered/Resolved]
  - Diabetes mellitus [Not Recovered/Not Resolved]
  - Concomitant disease progression [Not Recovered/Not Resolved]
